FAERS Safety Report 25371875 (Version 1)
Quarter: 2025Q2

REPORT INFORMATION
  Report Type: Spontaneous
  Country: ZA (occurrence: ZA)
  Receive Date: 20250529
  Receipt Date: 20250529
  Transmission Date: 20250717
  Serious: Yes (Other)
  Sender: CSL BEHRING
  Company Number: ZA-ROCHE-3577315

PATIENT
  Age: 63 Year
  Sex: Female

DRUGS (1)
  1. MIRCERA [Suspect]
     Active Substance: METHOXY POLYETHYLENE GLYCOL-EPOETIN BETA
     Indication: End stage renal disease
     Dosage: 150 ?G, QMT, 200MCG/0.3ML
     Route: 058

REACTIONS (2)
  - Malaise [Unknown]
  - Haemoglobin decreased [Unknown]
